FAERS Safety Report 12278684 (Version 2)
Quarter: 2016Q2

REPORT INFORMATION
  Report Type: Report from Study
  Country: US (occurrence: US)
  Receive Date: 20160418
  Receipt Date: 20160531
  Transmission Date: 20160815
  Serious: Yes (Disabling)
  Sender: FDA-Public Use
  Company Number: US-SA-2016SA072555

PATIENT
  Age: 74 Year
  Sex: Female

DRUGS (6)
  1. HUMALOG [Concomitant]
     Active Substance: INSULIN LISPRO
  2. LANTUS SOLOSTAR [Suspect]
     Active Substance: INSULIN GLARGINE
     Indication: TYPE 2 DIABETES MELLITUS
     Dosage: DOSE:12 UNIT(S)
     Route: 065
     Dates: end: 20160406
  3. SOLOSTAR [Concomitant]
     Active Substance: DEVICE
  4. LANTUS SOLOSTAR [Suspect]
     Active Substance: INSULIN GLARGINE
     Indication: TYPE 2 DIABETES MELLITUS
     Route: 065
  5. SOLOSTAR [Concomitant]
     Active Substance: DEVICE
     Dates: end: 20160406
  6. METFORMIN [Concomitant]
     Active Substance: METFORMIN HYDROCHLORIDE

REACTIONS (9)
  - Blindness [Unknown]
  - Optic nerve injury [Unknown]
  - Weight decreased [Unknown]
  - Coma [Unknown]
  - Blood glucose decreased [Unknown]
  - Product use issue [Unknown]
  - Glycosylated haemoglobin increased [Unknown]
  - Cardiac arrest [Unknown]
  - Wrong technique in product usage process [Unknown]

NARRATIVE: CASE EVENT DATE: 2006
